FAERS Safety Report 5312380-3 (Version None)
Quarter: 2007Q2

REPORT INFORMATION
  Report Type: 
  Country: None (occurrence: None)
  Receive Date: 20070430
  Receipt Date: 20061201
  Transmission Date: 20071010
  Serious: No
  Sender: FDA-Public Use
  Company Number: 2006UW26909

PATIENT
  Age: 71 Year
  Sex: Male
  Weight: 85.3 kg

DRUGS (8)
  1. NEXIUM [Suspect]
     Indication: DYSPEPSIA
     Route: 048
  2. NEXIUM [Suspect]
     Route: 048
  3. PLAVIX [Concomitant]
  4. ASPIRIN [Concomitant]
  5. NORVASC [Concomitant]
  6. ATENOLOL [Concomitant]
     Route: 048
  7. ALTACE [Concomitant]
  8. ZYRTEC [Concomitant]

REACTIONS (1)
  - ORAL DISCOMFORT [None]
